FAERS Safety Report 24751047 (Version 1)
Quarter: 2024Q4

REPORT INFORMATION
  Report Type: Spontaneous
  Country: FR (occurrence: FR)
  Receive Date: 20241219
  Receipt Date: 20241219
  Transmission Date: 20250115
  Serious: Yes (Hospitalization, Other)
  Sender: ALEXION PHARMACEUTICALS
  Company Number: None

PATIENT
  Age: 64 Year
  Weight: 58.3 kg

DRUGS (15)
  1. QUETIAPINE FUMARATE [Suspect]
     Active Substance: QUETIAPINE FUMARATE
     Indication: Childhood psychosis
     Dosage: QUETIAPINE LP 400MG 1 TAB MORNING AND EVENING
  2. QUETIAPINE FUMARATE [Suspect]
     Active Substance: QUETIAPINE FUMARATE
     Indication: Epilepsy
  3. VALPROATE SODIUM [Suspect]
     Active Substance: VALPROATE SODIUM
     Indication: Childhood psychosis
     Dosage: 2 TABLETS MORNING AND EVENING
  4. VALPROATE SODIUM [Suspect]
     Active Substance: VALPROATE SODIUM
     Indication: Epilepsy
  5. LEVOMEPROMAZINE [Suspect]
     Active Substance: LEVOMEPROMAZINE
     Indication: Childhood psychosis
     Dosage: NOZINAN 4% ORAL SOLUTION 75MG MORNING, 50MG MIDDAY, 30MG EVENING
  6. LEVOMEPROMAZINE [Suspect]
     Active Substance: LEVOMEPROMAZINE
     Indication: Agitation
     Dosage: LEVOMEPROMAZINE 4% ORAL SOLUTION, 30MG IF REQUIRED
  7. PAROXETINE [Suspect]
     Active Substance: PAROXETINE
     Indication: Epilepsy
     Dosage: 1 TABLET IN THE MORNING
     Route: 065
  8. LORAZEPAM [Concomitant]
     Active Substance: LORAZEPAM
     Indication: Agitation
     Dosage: LORAZEPAM 1MG, 1 - 0.5 - 0.5
     Route: 065
  9. LORAZEPAM [Concomitant]
     Active Substance: LORAZEPAM
     Dosage: LORAZEPAM 1MG, 1 TABLET IF REQUIRED
     Route: 065
  10. ZOPICLONE [Concomitant]
     Active Substance: ZOPICLONE
     Dosage: ZOPICLONE 3.75MG, 1 TABLET AT NIGHT
     Route: 065
  11. FINASTERIDE [Concomitant]
     Active Substance: FINASTERIDE
     Dosage: FINASTERIDE 5MG, 1 TABLET IN THE MORNING
     Route: 065
  12. SODIUM ALGINATE\SODIUM BICARBONATE [Concomitant]
     Active Substance: SODIUM ALGINATE\SODIUM BICARBONATE
     Dosage: SODIUM ALGINATE + SODIUM BICARBONATE 500MG/267MG, 1 SACHET MORNING, NOON AND EVENING
     Route: 065
  13. LANSOPRAZOLE [Concomitant]
     Active Substance: LANSOPRAZOLE
     Dosage: LANSOPRAZOLE 15MG, 1 TABLET IN THE EVENING
     Route: 065
  14. POLYETHYLENE GLYCOL 3350 [Concomitant]
     Active Substance: POLYETHYLENE GLYCOL 3350
     Dosage: MACROGOL 3350, 1 SACHET MORNING AND EVENING
     Route: 065
  15. ACETAMINOPHEN [Concomitant]
     Active Substance: ACETAMINOPHEN
     Dosage: PARACETAMOL 1G, 3/DAY IF NECESSARY
     Route: 065

REACTIONS (3)
  - Osteoporosis [Not Recovered/Not Resolved]
  - Hyperprolactinaemia [Unknown]
  - Fall [Unknown]
